FAERS Safety Report 4547081-2 (Version None)
Quarter: 2005Q1

REPORT INFORMATION
  Report Type: 
  Country: None (occurrence: None)
  Receive Date: 20050105
  Receipt Date: 20041222
  Transmission Date: 20050727
  Serious: Yes (Congenital Anomaly)
  Sender: FDA-Public Use
  Company Number: EM2004-0661

PATIENT
  Sex: Male

DRUGS (7)
  1. PROLEUKIN [Suspect]
     Indication: HIV INFECTION
     Dates: end: 20040404
  2. PROLEUKIN [Suspect]
     Indication: HIV INFECTION
     Dates: start: 20030116
  3. HORMONE STIMULATIONS [Suspect]
  4. DIDANOSINE [Concomitant]
  5. LAMIVUDINE [Concomitant]
  6. NELFINAVIR [Concomitant]
  7. EFAVIRENZ [Concomitant]

REACTIONS (5)
  - CAESAREAN SECTION [None]
  - DUODENAL ATRESIA [None]
  - OESOPHAGEAL ATRESIA [None]
  - RECTAL ATRESIA [None]
  - TRANSMISSION OF DRUG VIA SEMEN [None]
